FAERS Safety Report 9568616 (Version 2)
Quarter: 2013Q4

REPORT INFORMATION
  Report Type: Spontaneous
  Country: US (occurrence: US)
  Receive Date: 20130930
  Receipt Date: 20131106
  Transmission Date: 20140711
  Serious: Yes (Other)
  Sender: FDA-Public Use
  Company Number: US-AMGEN-USASP2013061729

PATIENT
  Age: 35 Year
  Sex: Female
  Weight: 100.23 kg

DRUGS (4)
  1. ENBREL [Suspect]
     Indication: PSORIATIC ARTHROPATHY
     Dosage: 50 MG, WEEKLY
     Route: 058
     Dates: start: 20110523
  2. ENBREL [Suspect]
     Indication: PSORIASIS
  3. ADVAIR [Concomitant]
     Dosage: UNK
     Route: 055
  4. ALBUTEROL                          /00139501/ [Concomitant]
     Dosage: UNK
     Route: 055

REACTIONS (3)
  - Tooth infection [Recovered/Resolved]
  - Injury associated with device [Recovered/Resolved]
  - Injection site pain [Not Recovered/Not Resolved]
